FAERS Safety Report 8269034-3 (Version None)
Quarter: 2012Q1

REPORT INFORMATION
  Report Type: 
  Country: None (occurrence: None)
  Receive Date: 20120327
  Receipt Date: 20090817
  Transmission Date: 20120608
  Serious: Yes (Disabling)
  Sender: FDA-Public Use
  Company Number: PHEH2009US08841

PATIENT
  Age: 61 Year
  Sex: Female
  Weight: 72.6 kg

DRUGS (8)
  1. ESTRACE [Concomitant]
  2. ASPIRIN [Concomitant]
  3. GLUCOSAMINE (GLUCOSAMINE) [Concomitant]
  4. PREVERA (MEDROXYPROGESTERONE ACETATE) [Concomitant]
  5. MULTI-VITAMINS [Concomitant]
  6. VOLTAREN [Concomitant]
  7. IRON (IRON) [Concomitant]
  8. GLEEVEC [Suspect]
     Indication: CHRONIC MYELOID LEUKAEMIA
     Dosage: 400 MG, QD, ORAL
     Route: 048

REACTIONS (6)
  - PERIORBITAL OEDEMA [None]
  - DIARRHOEA [None]
  - FATIGUE [None]
  - EYE OEDEMA [None]
  - OEDEMA PERIPHERAL [None]
  - MUSCLE FATIGUE [None]
